FAERS Safety Report 11677578 (Version 1)
Quarter: 2015Q4

REPORT INFORMATION
  Report Type: Spontaneous
  Country: US (occurrence: US)
  Receive Date: 20151027
  Receipt Date: 20151027
  Transmission Date: 20160304
  Serious: No
  Sender: FDA-Public Use
  Company Number: US-ELI_LILLY_AND_COMPANY-US201009007308

PATIENT
  Sex: Female

DRUGS (2)
  1. FORTEO [Suspect]
     Active Substance: TERIPARATIDE
     Indication: OSTEOPOROSIS
     Dosage: 20 UG, DAILY (1/D)
     Dates: start: 20100917
  2. FORTEO [Suspect]
     Active Substance: TERIPARATIDE
     Dosage: 20 UG, DAILY (1/D)
     Dates: end: 20101019

REACTIONS (8)
  - Gastrooesophageal reflux disease [Unknown]
  - Bone pain [Unknown]
  - Lung disorder [Unknown]
  - Constipation [Unknown]
  - Arthralgia [Unknown]
  - Dyspepsia [Unknown]
  - Dyspnoea [Unknown]
  - Chest discomfort [Unknown]
